FAERS Safety Report 4399205-8 (Version None)
Quarter: 2004Q3

REPORT INFORMATION
  Report Type: 
  Country: None (occurrence: None)
  Receive Date: 20040715
  Receipt Date: 20040715
  Transmission Date: 20050211
  Serious: Yes (Hospitalization)
  Sender: FDA-Public Use
  Company Number: None

PATIENT
  Age: 71 Year
  Sex: Male
  Weight: 99.7913 kg

DRUGS (2)
  1. CISPLATIN [Suspect]
     Indication: NON-SMALL CELL LUNG CANCER
     Dosage: 100 MG DAYS 1-5 INTRAVENOUS
     Route: 042
     Dates: start: 20040614, end: 20040621
  2. ETOPOSIDE [Suspect]
     Indication: NON-SMALL CELL LUNG CANCER
     Dosage: 100 MG DAYS 1 AND INTRAVENOUS
     Route: 042
     Dates: start: 20040614, end: 20040618

REACTIONS (4)
  - CONFUSIONAL STATE [None]
  - HAEMOPTYSIS [None]
  - LOBAR PNEUMONIA [None]
  - SEPSIS [None]
